FAERS Safety Report 26054991 (Version 1)
Quarter: 2025Q4

REPORT INFORMATION
  Report Type: Report from Study
  Country: EU (occurrence: EU)
  Receive Date: 20251117
  Receipt Date: 20251117
  Transmission Date: 20260118
  Serious: Yes (Life-Threatening, Other)
  Sender: PFIZER
  Company Number: EU-PFIZER INC-202500223962

PATIENT
  Age: 1 Day
  Sex: Male
  Weight: 2.225 kg

DRUGS (4)
  1. CARBOPLATIN [Suspect]
     Active Substance: CARBOPLATIN
     Indication: Neuroblastoma
     Dosage: 6.6 MG/KG, CYCLIC (DAYS 1-3) COURSE 1
  2. CARBOPLATIN [Suspect]
     Active Substance: CARBOPLATIN
     Dosage: 6.6 MG/KG, CYCLIC (DAYS 1-3) COURSE 2
  3. ETOPOSIDE [Suspect]
     Active Substance: ETOPOSIDE
     Indication: Neuroblastoma
     Dosage: 5 MG/KG, CYCLIC (DAYS 1-3) COURSE 1
  4. ETOPOSIDE [Suspect]
     Active Substance: ETOPOSIDE
     Dosage: 5 MG/KG, CYCLIC (DAYS 1-3) COURSE 2

REACTIONS (2)
  - Hepatotoxicity [Recovered/Resolved]
  - Febrile neutropenia [Recovered/Resolved]
